FAERS Safety Report 9405963 (Version 1)
Quarter: 2013Q3

REPORT INFORMATION
  Report Type: Spontaneous
  Country: CH (occurrence: CH)
  Receive Date: 20130717
  Receipt Date: 20130717
  Transmission Date: 20140515
  Serious: Yes (Hospitalization)
  Sender: FDA-Public Use
  Company Number: CH-GLAXOSMITHKLINE-B0908289A

PATIENT
  Age: 59 Year
  Sex: Male

DRUGS (10)
  1. VALTREX [Suspect]
     Indication: HERPES ZOSTER
     Dosage: 1000MG THREE TIMES PER DAY
     Route: 048
     Dates: start: 201304
  2. REMERON [Suspect]
     Indication: DEPRESSION
     Dosage: 60MG PER DAY
     Route: 048
  3. SEROQUEL [Suspect]
     Indication: DEPRESSION
     Dosage: 50MG PER DAY
     Route: 048
  4. NORTRILEN [Suspect]
     Indication: DEPRESSION
     Dosage: 25MG PER DAY
     Route: 048
     Dates: start: 20130507, end: 20130507
  5. BELOC [Concomitant]
     Dosage: 50MG PER DAY
     Route: 048
  6. IMOVANE [Concomitant]
     Dosage: 3.75MG PER DAY
     Route: 048
  7. EUTHYROX [Concomitant]
     Route: 048
  8. DIFLUCAN [Concomitant]
     Route: 048
  9. MARCOUMAR [Concomitant]
     Dosage: 1U AS REQUIRED
     Route: 048
     Dates: start: 20130510
  10. VELCADE [Concomitant]
     Dosage: 1U CYCLIC
     Route: 058

REACTIONS (1)
  - Myoclonus [Recovering/Resolving]
